FAERS Safety Report 12965177 (Version 1)
Quarter: 2016Q4

REPORT INFORMATION
  Report Type: Report from Study
  Country: US (occurrence: US)
  Receive Date: 20161122
  Receipt Date: 20161122
  Transmission Date: 20170207
  Serious: Yes (Hospitalization)
  Sender: FDA-Public Use
  Company Number: US-JNJFOC-20161122236

PATIENT
  Age: 67 Year
  Sex: Male

DRUGS (14)
  1. FISH OIL [Concomitant]
     Active Substance: FISH OIL
  2. METOPROLOL TARTRATE. [Concomitant]
     Active Substance: METOPROLOL TARTRATE
  3. WELLBUTRIN [Concomitant]
     Active Substance: BUPROPION HYDROCHLORIDE
  4. ATORVASTATIN [Concomitant]
     Active Substance: ATORVASTATIN
  5. DEPLIN [Concomitant]
     Active Substance: LEVOMEFOLATE CALCIUM
  6. ASPIRIN. [Concomitant]
     Active Substance: ASPIRIN
  7. AVODART [Concomitant]
     Active Substance: DUTASTERIDE
  8. KLONOPIN [Concomitant]
     Active Substance: CLONAZEPAM
  9. BENAZEPRIL [Concomitant]
     Active Substance: BENAZEPRIL HYDROCHLORIDE
  10. IMBRUVICA [Suspect]
     Active Substance: IBRUTINIB
     Indication: CHRONIC LYMPHOCYTIC LEUKAEMIA
     Route: 048
     Dates: start: 20151215
  11. BIFIDOBACTERIUM LACTIS [Concomitant]
  12. VITAMIN D3 [Concomitant]
     Active Substance: CHOLECALCIFEROL
  13. CYMBALTA [Concomitant]
     Active Substance: DULOXETINE HYDROCHLORIDE
  14. TEMAZEPAM. [Concomitant]
     Active Substance: TEMAZEPAM

REACTIONS (4)
  - Incorrect dose administered [Unknown]
  - Loss of consciousness [Unknown]
  - Atrial fibrillation [Unknown]
  - Off label use [Unknown]

NARRATIVE: CASE EVENT DATE: 20151215
